FAERS Safety Report 4677075-8 (Version None)
Quarter: 2005Q2

REPORT INFORMATION
  Report Type: 
  Country: None (occurrence: None)
  Receive Date: 20050525
  Receipt Date: 20050314
  Transmission Date: 20051028
  Serious: No
  Sender: FDA-Public Use
  Company Number: SU-2005-003322

PATIENT
  Age: 77 Year
  Sex: Male
  Weight: 58.9676 kg

DRUGS (4)
  1. BENICAR [Suspect]
     Indication: AORTIC VALVE INCOMPETENCE
     Dosage: 5 MG QD PO
     Route: 048
     Dates: start: 20050224
  2. BENICAR [Suspect]
     Indication: MYOCARDIAL INFARCTION
     Dosage: 5 MG QD PO
     Route: 048
     Dates: start: 20050224
  3. LIPITOR [Concomitant]
  4. ASPIRIN [Concomitant]

REACTIONS (2)
  - DIZZINESS [None]
  - GAIT DISTURBANCE [None]
